FAERS Safety Report 9988942 (Version 2)
Quarter: 2014Q1

REPORT INFORMATION
  Report Type: Report from Study
  Country: US (occurrence: US)
  Receive Date: 20140310
  Receipt Date: 20140310
  Transmission Date: 20141002
  Serious: No
  Sender: FDA-Public Use
  Company Number: US-ABBVIE-13P-163-1116973-00

PATIENT
  Sex: Female

DRUGS (2)
  1. HUMIRA [Suspect]
     Indication: PSORIASIS
     Route: 058
     Dates: start: 20130615
  2. HUMIRA [Suspect]
     Route: 058
     Dates: start: 20130616

REACTIONS (2)
  - Injection site inflammation [Unknown]
  - Injection site erythema [Unknown]
